FAERS Safety Report 9777538 (Version 1)
Quarter: 2013Q4

REPORT INFORMATION
  Report Type: Spontaneous
  Country: AU (occurrence: AU)
  Receive Date: 20131222
  Receipt Date: 20131222
  Transmission Date: 20140711
  Serious: Yes (Hospitalization)
  Sender: FDA-Public Use
  Company Number: AU-009507513-1312AUS008476

PATIENT
  Age: 31 Year
  Sex: Female

DRUGS (2)
  1. RIZATRIPTAN BENZOATE [Suspect]
     Dosage: 30 MG, PRN
     Route: 048
     Dates: start: 20130815
  2. VERAPAMIL [Suspect]
     Indication: MIGRAINE PROPHYLAXIS
     Dosage: 240 MG, DAILY
     Dates: start: 20130815, end: 20130907

REACTIONS (2)
  - Oedema peripheral [Not Recovered/Not Resolved]
  - Off label use [Unknown]
